FAERS Safety Report 8520940-1 (Version None)
Quarter: 2012Q3

REPORT INFORMATION
  Report Type: 
  Country: None (occurrence: None)
  Receive Date: 20120719
  Receipt Date: 20120711
  Transmission Date: 20120928
  Serious: Yes (Other)
  Sender: FDA-Public Use
  Company Number: JP-009507513-1207JPN005833

PATIENT

DRUGS (3)
  1. TELAPREVIR [Suspect]
     Indication: HEPATITIS C
     Route: 048
     Dates: start: 20120614, end: 20120627
  2. REBETOL [Suspect]
     Route: 048
     Dates: start: 20120614
  3. PEG-INTRON [Suspect]
     Indication: HEPATITIS C
     Dosage: 80MCG
     Route: 058
     Dates: start: 20120614

REACTIONS (1)
  - AMYLASE INCREASED [None]
